FAERS Safety Report 7236776-8 (Version None)
Quarter: 2011Q1

REPORT INFORMATION
  Report Type: 
  Country: None (occurrence: None)
  Receive Date: 20110120
  Receipt Date: 20110113
  Transmission Date: 20110831
  Serious: Yes (Hospitalization, Other)
  Sender: FDA-Public Use
  Company Number: US-B.I. PHARMACEUTICALS,INC./RIDGEFIELD-2011-BP-00969BP

PATIENT
  Sex: Female

DRUGS (6)
  1. PRADAXA [Suspect]
     Indication: ATRIAL FIBRILLATION
     Dosage: 300 MG
     Route: 048
     Dates: start: 20101120
  2. VALIUM [Concomitant]
     Indication: SLEEP DISORDER
  3. LIPITOR [Concomitant]
     Indication: BLOOD CHOLESTEROL INCREASED
  4. ASPIRIN [Concomitant]
  5. PROTONIX [Concomitant]
     Indication: GASTROOESOPHAGEAL REFLUX DISEASE
  6. PRADAXA [Suspect]
     Dosage: 300 MG
     Route: 048
     Dates: start: 20110106

REACTIONS (9)
  - HEART RATE DECREASED [None]
  - SYNCOPE [None]
  - BRONCHITIS [None]
  - VISUAL FIELD DEFECT [None]
  - VITREOUS FLOATERS [None]
  - THROMBOSIS [None]
  - HEART RATE ABNORMAL [None]
  - EYE PAIN [None]
  - SPEECH DISORDER [None]
